FAERS Safety Report 9359825 (Version 2)
Quarter: 2013Q4

REPORT INFORMATION
  Report Type: Spontaneous
  Country: US (occurrence: US)
  Receive Date: 20130621
  Receipt Date: 20131218
  Transmission Date: 20140711
  Serious: Yes (Other)
  Sender: FDA-Public Use
  Company Number: US-ROCHE-1239144

PATIENT
  Sex: Female
  Weight: 61.29 kg

DRUGS (2)
  1. ACCUTANE [Suspect]
     Indication: ACNE
     Route: 065
     Dates: start: 2000, end: 2001
  2. ASPIRIN [Concomitant]

REACTIONS (5)
  - Colon cancer [Unknown]
  - Inflammatory bowel disease [Unknown]
  - Colorectal cancer [Unknown]
  - Anxiety [Unknown]
  - Intestinal obstruction [Unknown]
